FAERS Safety Report 5950562-8 (Version None)
Quarter: 2008Q4

REPORT INFORMATION
  Report Type: 
  Country: None (occurrence: None)
  Receive Date: 20081112
  Receipt Date: 20081104
  Transmission Date: 20090506
  Serious: Yes (Other)
  Sender: FDA-Public Use
  Company Number: US-ELI_LILLY_AND_COMPANY-US200810002846

PATIENT
  Sex: Male

DRUGS (9)
  1. HUMALOG [Suspect]
     Indication: DIABETES MELLITUS
     Dosage: 6 U, UNK
  2. HUMALOG [Suspect]
     Indication: DIABETES MELLITUS
     Dosage: 10 U, EACH MORNING
  3. HUMULIN N [Suspect]
     Indication: DIABETES MELLITUS
     Dosage: 8 U, EACH EVENING
  4. COREG [Concomitant]
     Dosage: 6.25 MG, UNK
  5. LASIX [Concomitant]
     Dosage: 20 MG, 5/W
  6. LASIX [Concomitant]
     Dosage: 40 MG, 2/W
  7. FLOMAX [Concomitant]
     Dosage: 0.04 MG, 2/D
  8. DIOVAN [Concomitant]
     Dosage: 160 MG, UNK
  9. TOPRAL [Concomitant]
     Dosage: 50 MG, UNK

REACTIONS (3)
  - BLADDER CANCER [None]
  - BLINDNESS [None]
  - CATARACT [None]
